FAERS Safety Report 13534597 (Version 2)
Quarter: 2017Q2

REPORT INFORMATION
  Report Type: Report from Study
  Country: CA (occurrence: CA)
  Receive Date: 20170511
  Receipt Date: 20170522
  Transmission Date: 20170830
  Serious: Yes (Other)
  Sender: FDA-Public Use
  Company Number: CA-PFIZER INC-2017205486

PATIENT
  Age: 81 Year
  Sex: Female

DRUGS (7)
  1. PANTOLOC [Suspect]
     Active Substance: PANTOPRAZOLE SODIUM
     Dosage: 40 MG, 1X/DAY
     Dates: start: 201701
  2. VITAMIN D3 [Concomitant]
     Active Substance: CHOLECALCIFEROL
     Dosage: 1000 IU, 1X/DAY
  3. PLENDIL [Concomitant]
     Active Substance: FELODIPINE
     Dosage: 2.5 MG, 2X/DAY
  4. MEZAVANT [Concomitant]
     Active Substance: MESALAMINE
     Dosage: 4.8 G, 1X/DAY
  5. ENTYVIO [Suspect]
     Active Substance: VEDOLIZUMAB
     Indication: COLITIS ULCERATIVE
     Dosage: 300 MG, UNK
     Route: 042
     Dates: start: 20160324
  6. PREDNISONE. [Concomitant]
     Active Substance: PREDNISONE
     Dosage: 10 MG, UNK
  7. TYLENOL WITH CODEINE [Concomitant]
     Active Substance: ACETAMINOPHEN\CODEINE PHOSPHATE
     Dosage: UNK

REACTIONS (2)
  - Back pain [Unknown]
  - Tendon rupture [Unknown]

NARRATIVE: CASE EVENT DATE: 20170428
